FAERS Safety Report 9300218 (Version 1)
Quarter: 2013Q2

REPORT INFORMATION
  Report Type: Spontaneous
  Country: KW (occurrence: KW)
  Receive Date: 20130521
  Receipt Date: 20130521
  Transmission Date: 20140414
  Serious: Yes (Hospitalization, Other)
  Sender: FDA-Public Use
  Company Number: PHHY2013KW050295

PATIENT
  Age: 52 Year
  Sex: Female
  Weight: 77 kg

DRUGS (14)
  1. ACLASTA [Suspect]
     Indication: OSTEOPOROSIS
     Dosage: 5 MG, UNK
     Route: 042
     Dates: start: 20130411
  2. STEROIDS NOS [Concomitant]
     Route: 048
  3. MYFORTIC [Concomitant]
     Route: 048
  4. LIPITOR [Concomitant]
     Route: 048
  5. ASPIRIN [Concomitant]
     Route: 048
  6. VIT D [Concomitant]
     Route: 048
  7. CALCIUM [Concomitant]
     Route: 048
  8. INSULIN [Concomitant]
  9. JANUVIA [Concomitant]
     Route: 048
  10. ARANESP [Concomitant]
     Route: 048
  11. TENORMIN [Concomitant]
     Route: 048
  12. NORVAS [Concomitant]
     Route: 048
  13. DIOVAN [Concomitant]
     Route: 048
  14. PROZAC [Concomitant]
     Route: 048

REACTIONS (3)
  - Complications of transplanted kidney [Recovered/Resolved]
  - Renal tubular necrosis [Recovered/Resolved]
  - Toxicity to various agents [Recovered/Resolved]
